FAERS Safety Report 9119912 (Version 1)
Quarter: 2013Q1

REPORT INFORMATION
  Report Type: Spontaneous
  Country: US (occurrence: US)
  Receive Date: 20130226
  Receipt Date: 20130226
  Transmission Date: 20140127
  Serious: Yes (Hospitalization)
  Sender: FDA-Public Use
  Company Number: US-ELI_LILLY_AND_COMPANY-US201206009157

PATIENT
  Age: 74 Year
  Sex: Female

DRUGS (10)
  1. FORTEO [Suspect]
     Indication: OSTEOPOROSIS
     Dosage: 20 UG, QD
     Dates: start: 20120511
  2. FORTEO [Suspect]
     Dosage: 20 UG, QD
  3. FORTEO [Suspect]
     Dosage: 20 UG, QD
     Dates: start: 20120511
  4. NEURONTIN [Concomitant]
  5. MULTIVITAMINS PLUS IRON [Concomitant]
  6. VITAMIN B6 [Concomitant]
  7. VITAMIN B12 [Concomitant]
  8. FLAXSEED OIL [Concomitant]
  9. PRILOSEC [Concomitant]
  10. LASIX [Concomitant]

REACTIONS (4)
  - Cardiac failure congestive [Recovered/Resolved]
  - Hip fracture [Recovered/Resolved]
  - Fall [Recovered/Resolved]
  - Injection site bruising [Recovering/Resolving]
